FAERS Safety Report 9429408 (Version 1)
Quarter: 2013Q3

REPORT INFORMATION
  Report Type: Report from Study
  Country: US (occurrence: US)
  Receive Date: 20130730
  Receipt Date: 20130730
  Transmission Date: 20140515
  Serious: No
  Sender: FDA-Public Use
  Company Number: US-ABBOTT-13P-163-1061889-00

PATIENT
  Sex: Male

DRUGS (3)
  1. NIASPAN (COATED) [Suspect]
     Indication: PRODUCT USED FOR UNKNOWN INDICATION
  2. ASPIRIN [Concomitant]
     Indication: PRODUCT USED FOR UNKNOWN INDICATION
  3. AMLODIPINE [Concomitant]
     Indication: PRODUCT USED FOR UNKNOWN INDICATION

REACTIONS (4)
  - Weight decreased [Not Recovered/Not Resolved]
  - Feeling hot [Recovered/Resolved]
  - Pruritus [Recovered/Resolved]
  - Paraesthesia [Recovered/Resolved]
